FAERS Safety Report 9153449 (Version 1)
Quarter: 2013Q1

REPORT INFORMATION
  Report Type: Spontaneous
  Country: US (occurrence: None)
  Receive Date: 20130306
  Receipt Date: 20130306
  Transmission Date: 20140127
  Serious: Yes (Other)
  Sender: FDA-Public Use
  Company Number: None

PATIENT
  Age: 43 Year
  Sex: Female
  Weight: 63.5 kg

DRUGS (2)
  1. LAMOTRIGINE [Suspect]
     Indication: BIPOLAR DISORDER
     Dosage: 75MG  ONCE DAILY  PO
     Route: 048
     Dates: start: 20130121, end: 20130227
  2. BUPROPION 300MG XL [Concomitant]

REACTIONS (27)
  - Lymphadenopathy [None]
  - Influenza [None]
  - Musculoskeletal stiffness [None]
  - Photophobia [None]
  - Paraesthesia [None]
  - Hypoaesthesia [None]
  - Pain [None]
  - Muscular weakness [None]
  - Chromaturia [None]
  - Chest pain [None]
  - Heart rate irregular [None]
  - Dyspnoea [None]
  - Confusional state [None]
  - Oliguria [None]
  - Dizziness [None]
  - Heart rate increased [None]
  - Disturbance in attention [None]
  - Dizziness [None]
  - Fatigue [None]
  - Vision blurred [None]
  - Diplopia [None]
  - Coordination abnormal [None]
  - Menstrual disorder [None]
  - Abdominal pain upper [None]
  - Abdominal discomfort [None]
  - Back pain [None]
  - Feeling abnormal [None]
